FAERS Safety Report 8616235-8 (Version None)
Quarter: 2012Q3

REPORT INFORMATION
  Report Type: 
  Country: None (occurrence: None)
  Receive Date: 20120823
  Receipt Date: 20120731
  Transmission Date: 20120928
  Serious: No
  Sender: FDA-Public Use
  Company Number: US-009507513-1208USA000415

PATIENT

DRUGS (6)
  1. PROSCAR [Suspect]
     Indication: BENIGN PROSTATIC HYPERPLASIA
     Dosage: 5 MG, QD
     Route: 048
     Dates: start: 19880101
  2. HYZAAR [Concomitant]
     Route: 048
  3. VIAGRA [Concomitant]
  4. TRAZODONE HCL [Concomitant]
  5. TOPROL-XL [Concomitant]
  6. VYTORIN [Concomitant]
     Route: 048

REACTIONS (3)
  - BREAST MASS [None]
  - BREAST ENLARGEMENT [None]
  - BREAST TENDERNESS [None]
